FAERS Safety Report 25528023 (Version 1)
Quarter: 2025Q3

REPORT INFORMATION
  Report Type: Spontaneous
  Country: US (occurrence: US)
  Receive Date: 20250708
  Receipt Date: 20250708
  Transmission Date: 20251021
  Serious: Yes (Hospitalization)
  Sender: STRIDES
  Company Number: US-STRIDES ARCOLAB LIMITED-2025SP000279

PATIENT
  Age: 5 Decade
  Sex: Female

DRUGS (5)
  1. VERAPAMIL [Suspect]
     Active Substance: VERAPAMIL HYDROCHLORIDE
     Indication: Hyperinsulinaemic hypoglycaemia
     Route: 065
  2. ACARBOSE [Suspect]
     Active Substance: ACARBOSE
     Indication: Hyperinsulinaemic hypoglycaemia
     Route: 065
  3. ACARBOSE [Suspect]
     Active Substance: ACARBOSE
     Route: 065
  4. DIAZOXIDE [Suspect]
     Active Substance: DIAZOXIDE
     Indication: Hyperinsulinaemic hypoglycaemia
     Route: 065
  5. DIAZOXIDE [Suspect]
     Active Substance: DIAZOXIDE
     Route: 065

REACTIONS (4)
  - Drug ineffective for unapproved indication [Unknown]
  - Nausea [Unknown]
  - Dizziness [Unknown]
  - Drug intolerance [Unknown]
